FAERS Safety Report 6637540-0 (Version None)
Quarter: 2010Q1

REPORT INFORMATION
  Report Type: 
  Country: None (occurrence: None)
  Receive Date: 20100317
  Receipt Date: 20100305
  Transmission Date: 20100710
  Serious: Yes (Hospitalization)
  Sender: FDA-Public Use
  Company Number: US-JNJFOC-20100203537

PATIENT
  Sex: Female
  Weight: 77.57 kg

DRUGS (9)
  1. EXTRA STRENGTH TYLENOL [Suspect]
  2. EXTRA STRENGTH TYLENOL [Suspect]
     Indication: HEADACHE
     Dosage: 1000MG EVERY 4-6 HOURS FOR 4-5DAYS
  3. MULTI-VITAMINS [Concomitant]
  4. CYMBALTA [Concomitant]
     Indication: DEPRESSION
  5. PREMARIN [Concomitant]
     Indication: HORMONE REPLACEMENT THERAPY
     Route: 048
  6. ALBUTEROL [Concomitant]
     Indication: ASTHMA
  7. XOPENEX [Concomitant]
     Indication: DRUG USE FOR UNKNOWN INDICATION
     Route: 048
  8. SYMBICORT [Concomitant]
     Indication: ASTHMA
     Route: 048
  9. SYMBICORT [Concomitant]
     Route: 048

REACTIONS (2)
  - ABDOMINAL PAIN UPPER [None]
  - PRODUCT QUALITY ISSUE [None]
